FAERS Safety Report 9269494 (Version 6)
Quarter: 2015Q2

REPORT INFORMATION
  Report Type: Spontaneous
  Country: US (occurrence: US)
  Receive Date: 20130503
  Receipt Date: 20150511
  Transmission Date: 20150821
  Serious: Yes (Other)
  Sender: FDA-Public Use
  Company Number: US-PFIZER INC-2013137061

PATIENT
  Age: 52 Year
  Sex: Female

DRUGS (13)
  1. PROMETHAZINE HYDROCHLORIDE. [Concomitant]
     Active Substance: PROMETHAZINE HYDROCHLORIDE
     Dosage: 25 MG, UNK
     Route: 048
     Dates: start: 20140609
  2. ALEVE [Concomitant]
     Active Substance: NAPROXEN SODIUM
     Dosage: 220 MG, UNK
     Route: 048
  3. DURAGESIC [Concomitant]
     Active Substance: FENTANYL
     Dosage: 50 50 MCG/HR PATCH 72 HOUR AS DIRECTED
     Dates: start: 20141124
  4. CYMBALTA [Concomitant]
     Active Substance: DULOXETINE HYDROCHLORIDE
     Dosage: 30 MG, UNK
     Route: 048
  5. VIVELLE - DOT [Concomitant]
     Dosage: 0.1 MG/24H, UNK
     Route: 062
  6. ZANAFLEX [Concomitant]
     Active Substance: TIZANIDINE HYDROCHLORIDE
     Dosage: 4MG TABLET 1-2 TABLETS AT BED TIME
     Route: 048
     Dates: start: 20140609
  7. LYRICA [Suspect]
     Active Substance: PREGABALIN
     Indication: NEURITIS
     Dosage: 75 MG, 2X/DAY
     Route: 048
  8. LYRICA [Suspect]
     Active Substance: PREGABALIN
     Indication: RADICULITIS
     Dosage: 75 MG, 3X/DAY
     Route: 048
     Dates: start: 20140613
  9. CLONAZEPAM. [Concomitant]
     Active Substance: CLONAZEPAM
     Dosage: 1 MG, UNK
     Route: 048
     Dates: start: 20140609
  10. BENADRYL [Concomitant]
     Active Substance: DIPHENHYDRAMINE HYDROCHLORIDE
     Indication: HYPERSENSITIVITY
     Dosage: 25 MG, UNK
     Route: 048
  11. HYDROCODONE W/ACETAMINOPHEN [Concomitant]
     Active Substance: ACETAMINOPHEN\HYDROCODONE BITARTRATE
     Dosage: HYDROCODONE BITARTRATE 7.5 MG/ PARACETAMOL 325 MG
     Route: 048
     Dates: start: 20140609
  12. PROGESTERONE MICRONIZED [Concomitant]
     Dosage: 100 MG, UNK
     Route: 048
  13. LUNESTA [Concomitant]
     Active Substance: ESZOPICLONE
     Dosage: 3 MG, 1X/DAY
     Route: 048
     Dates: start: 20140304

REACTIONS (9)
  - Withdrawal syndrome [Unknown]
  - Burning sensation [Unknown]
  - Neoplasm [Unknown]
  - Spinal cord neoplasm [Unknown]
  - Pain [Unknown]
  - Nausea [Unknown]
  - Hyperhidrosis [Unknown]
  - Palpitations [Unknown]
  - Peripheral swelling [Unknown]
